FAERS Safety Report 9001015 (Version 1)
Quarter: 2013Q1

REPORT INFORMATION
  Report Type: Spontaneous
  Country: US (occurrence: None)
  Receive Date: 20130103
  Receipt Date: 20130103
  Transmission Date: 20140127
  Serious: Yes (Other)
  Sender: FDA-Public Use
  Company Number: None

PATIENT
  Age: 39 Year
  Sex: Female
  Weight: 58.06 kg

DRUGS (2)
  1. CEFDINIR [Suspect]
     Indication: RESPIRATORY TRACT INFECTION
     Dosage: 1 CAPSULE
     Route: 048
     Dates: start: 20121219, end: 20121228
  2. TAMIFLU [Concomitant]

REACTIONS (4)
  - Urticaria [None]
  - Eye swelling [None]
  - Joint swelling [None]
  - Arthralgia [None]
